FAERS Safety Report 10280846 (Version 1)
Quarter: 2014Q3

REPORT INFORMATION
  Report Type: Spontaneous
  Country: US (occurrence: None)
  Receive Date: 20140703
  Receipt Date: 20140703
  Transmission Date: 20150326
  Serious: Yes (Hospitalization)
  Sender: FDA-Public Use
  Company Number: 2014CT000084

PATIENT
  Age: 61 Year
  Sex: Female

DRUGS (2)
  1. ANTIBIOTIC [Concomitant]
     Active Substance: UNSPECIFIED INGREDIENT
  2. KORLYM [Suspect]
     Active Substance: MIFEPRISTONE
     Indication: CUSHING^S SYNDROME
     Route: 048
     Dates: start: 20140521

REACTIONS (4)
  - Shock hypoglycaemic [None]
  - Coma scale abnormal [None]
  - Blood glucose abnormal [None]
  - Blood pressure abnormal [None]

NARRATIVE: CASE EVENT DATE: 2014
